FAERS Safety Report 15227474 (Version 7)
Quarter: 2018Q3

REPORT INFORMATION
  Report Type: Report from Study
  Country: AU (occurrence: AU)
  Receive Date: 20180801
  Receipt Date: 20180831
  Transmission Date: 20181010
  Serious: Yes (Hospitalization)
  Sender: FDA-Public Use
  Company Number: AU-ROCHE-2159023

PATIENT
  Age: 58 Year
  Sex: Female
  Weight: 55.5 kg

DRUGS (24)
  1. TRASTUZUMAB EMTANSINE [Suspect]
     Active Substance: ADO-TRASTUZUMAB EMTANSINE
     Indication: BREAST CANCER METASTATIC
     Dosage: DATE OF MOST RECENT DOSE OF TRASTUZUMAB EMTANSINE PRIOR TO AE ONSET 05/JUL/2018
     Route: 042
     Dates: start: 20170316
  2. PARACETAMOL [Concomitant]
     Active Substance: ACETAMINOPHEN
     Indication: ABDOMINAL PAIN
     Route: 065
     Dates: start: 20180722
  3. PARACETAMOL [Concomitant]
     Active Substance: ACETAMINOPHEN
     Indication: PYREXIA
  4. FRUSEMIDE [Concomitant]
     Active Substance: FUROSEMIDE
     Indication: GENERALISED OEDEMA
     Route: 065
     Dates: start: 20180727, end: 20180730
  5. PANTOPRAZOLE [Concomitant]
     Active Substance: PANTOPRAZOLE
     Route: 065
     Dates: start: 20180803
  6. SPIRONOLACTONE. [Concomitant]
     Active Substance: SPIRONOLACTONE
  7. PERINDOPRIL [Concomitant]
     Active Substance: PERINDOPRIL
     Route: 065
     Dates: start: 20180814
  8. HYDROCORT (HYDROCORTISONE ACETATE) [Concomitant]
     Indication: DERMATITIS
     Route: 065
     Dates: start: 20180525
  9. HYDROCORT (HYDROCORTISONE ACETATE) [Concomitant]
     Indication: RASH
  10. COMPOUND SODIUM LACTATE [Concomitant]
     Route: 065
     Dates: start: 20180722, end: 20180723
  11. POTASSIUM CHLORIDE. [Concomitant]
     Active Substance: POTASSIUM CHLORIDE
     Route: 065
     Dates: start: 20180729
  12. OXYCODONE [Concomitant]
     Active Substance: OXYCODONE
     Indication: PAIN
     Route: 065
     Dates: start: 20180723
  13. THIAMINE [Concomitant]
     Active Substance: THIAMINE
     Route: 065
     Dates: start: 20180726
  14. FRUSEMIDE [Concomitant]
     Active Substance: FUROSEMIDE
     Route: 065
     Dates: start: 20180803
  15. TEMAZEPAM. [Concomitant]
     Active Substance: TEMAZEPAM
     Route: 065
     Dates: start: 20180806
  16. CALTRATE [Concomitant]
     Active Substance: CALCIUM CARBONATE
     Indication: NUTRITIONAL SUPPLEMENTATION
     Route: 065
     Dates: start: 20180502
  17. LIGNOCAINE [Concomitant]
     Active Substance: LIDOCAINE HYDROCHLORIDE
     Indication: BIOPSY KIDNEY
     Route: 065
     Dates: start: 20180801, end: 20180801
  18. ATEZOLIZUMAB. [Suspect]
     Active Substance: ATEZOLIZUMAB
     Indication: BREAST CANCER METASTATIC
     Dosage: DATE OF MOST RECENT DOSE OF BLINDED ATEZOLIZUMAB PRIOR TO AE ONSET 05/JUL/2018
     Route: 042
     Dates: start: 20170316
  19. BACTRIM DS [Concomitant]
     Active Substance: SULFAMETHOXAZOLE\TRIMETHOPRIM
     Route: 065
     Dates: start: 20180822
  20. PANADEINE FORTE [Concomitant]
     Active Substance: ACETAMINOPHEN\CODEINE PHOSPHATE
     Indication: BIOPSY KIDNEY
     Route: 065
     Dates: start: 20180801, end: 20180801
  21. HYDROCORT (HYDROCORTISONE ACETATE) [Concomitant]
     Indication: RASH
  22. LORAZEPAM. [Concomitant]
     Active Substance: LORAZEPAM
     Indication: NAUSEA
     Route: 065
     Dates: start: 20180725, end: 20180725
  23. CLEXANE [Concomitant]
     Active Substance: ENOXAPARIN SODIUM
     Route: 065
     Dates: start: 20180726
  24. VITAMIN K [Concomitant]
     Active Substance: PHYTONADIONE
     Indication: BIOPSY KIDNEY
     Route: 065
     Dates: start: 20180731, end: 20180731

REACTIONS (1)
  - IgA nephropathy [Not Recovered/Not Resolved]

NARRATIVE: CASE EVENT DATE: 20180722
